FAERS Safety Report 13918064 (Version 2)
Quarter: 2017Q3

REPORT INFORMATION
  Report Type: Spontaneous
  Country: IT (occurrence: IT)
  Receive Date: 20170829
  Receipt Date: 20170919
  Transmission Date: 20171127
  Serious: Yes (Hospitalization)
  Sender: FDA-Public Use
  Company Number: PHHY2017IT126065

PATIENT
  Age: 33 Year
  Sex: Female

DRUGS (7)
  1. CARBOLITHIUM [Interacting]
     Active Substance: LITHIUM CARBONATE
     Indication: ABORTION SPONTANEOUS
     Dosage: 5 DF, UNK
     Route: 048
  2. FLUOXETINE [Suspect]
     Active Substance: FLUOXETINE HYDROCHLORIDE
     Indication: ABORTION SPONTANEOUS
     Dosage: 5 DF, UNK
     Route: 048
  3. TACHIDOL [Interacting]
     Active Substance: ACETAMINOPHEN\CODEINE PHOSPHATE
     Indication: ABORTION SPONTANEOUS
     Dosage: 5 DF, UNK
     Route: 048
  4. LORAZEPAM. [Interacting]
     Active Substance: LORAZEPAM
     Indication: ABORTION SPONTANEOUS
     Dosage: 5 DF, UNK
     Route: 048
  5. QUETIAPINE. [Interacting]
     Active Substance: QUETIAPINE
     Indication: ABORTION SPONTANEOUS
     Dosage: 1500 MG, UNK
     Route: 048
  6. ALCOHOL. [Interacting]
     Active Substance: ALCOHOL
     Indication: PRODUCT USED FOR UNKNOWN INDICATION
     Route: 065
  7. AUGMENTIN [Interacting]
     Active Substance: AMOXICILLIN\CLAVULANATE POTASSIUM
     Indication: ABORTION SPONTANEOUS
     Dosage: 5 DF, UNK
     Route: 048

REACTIONS (9)
  - Maternal exposure during pregnancy [Unknown]
  - Intentional overdose [Unknown]
  - Drug abuse [Unknown]
  - Pyrexia [Recovered/Resolved]
  - Leukocytosis [Recovering/Resolving]
  - Pelvic pain [Recovered/Resolved]
  - C-reactive protein increased [Recovering/Resolving]
  - Alcohol interaction [Unknown]
  - Induced abortion failed [Unknown]

NARRATIVE: CASE EVENT DATE: 20170713
